FAERS Safety Report 4289013-0 (Version None)
Quarter: 2004Q1

REPORT INFORMATION
  Report Type: 
  Country: None (occurrence: None)
  Receive Date: 20040206
  Receipt Date: 20040205
  Transmission Date: 20041129
  Serious: Yes (Hospitalization)
  Sender: FDA-Public Use
  Company Number: 20040004USST

PATIENT
  Sex: Female

DRUGS (3)
  1. PROCARBAZINE HYDROCHLORIDE [Suspect]
     Indication: HODGKIN'S DISEASE
  2. PT B: MOPP/ABV + RADIATION (SEE ARTICLE) [Concomitant]
  3. PT.C:MOPP+ RADIATION (SEE ARTICLE) [Concomitant]

REACTIONS (1)
  - CARDIOTOXICITY [None]
